FAERS Safety Report 20824430 (Version 1)
Quarter: 2022Q2

REPORT INFORMATION
  Report Type: Report from Study
  Country: US (occurrence: None)
  Receive Date: 20220513
  Receipt Date: 20220513
  Transmission Date: 20220721
  Serious: Yes (Death)
  Sender: FDA-Public Use
  Company Number: US-ROCHE-3094216

PATIENT
  Age: 74 Year
  Sex: Female
  Weight: 41.1 kg

DRUGS (1)
  1. ATEZOLIZUMAB [Suspect]
     Active Substance: ATEZOLIZUMAB
     Indication: Squamous cell carcinoma
     Route: 041

REACTIONS (1)
  - Failure to thrive [Fatal]

NARRATIVE: CASE EVENT DATE: 20220505
